FAERS Safety Report 8839762 (Version 2)
Quarter: 2012Q4

REPORT INFORMATION
  Report Type: Report from Study
  Country: RU (occurrence: RU)
  Receive Date: 20121015
  Receipt Date: 20121024
  Transmission Date: 20130627
  Serious: Yes (Life-Threatening, Hospitalization)
  Sender: FDA-Public Use
  Company Number: RU-NOVOPROD-361631

PATIENT
  Age: 62 Year
  Sex: Female
  Weight: 114 kg

DRUGS (2)
  1. LIRAGLUTIDE FLEXPEN [Suspect]
     Indication: TYPE 2 DIABETES MELLITUS
     Dosage: 1.2 mg, UNK
     Route: 058
     Dates: start: 20120711, end: 20120725
  2. LIRAGLUTIDE FLEXPEN [Suspect]
     Dosage: 1.2 mg, UNK
     Route: 058
     Dates: start: 20120803

REACTIONS (1)
  - Cholecystitis acute [Recovered/Resolved]
